FAERS Safety Report 8849684 (Version 3)
Quarter: 2014Q1

REPORT INFORMATION
  Report Type: Spontaneous
  Country: US (occurrence: None)
  Receive Date: 20120426
  Receipt Date: 20130107
  Transmission Date: 20141002
  Serious: No
  Sender: FDA-Public Use
  Company Number: PHEH2012US004401

PATIENT
  Age: 47 Year
  Sex: Female
  Weight: 56.7 kg

DRUGS (7)
  1. GILENYA [Suspect]
     Indication: RELAPSING-REMITTING MULTIPLE SCLEROSIS
     Route: 048
     Dates: start: 20120214
  2. ADDERALL [Concomitant]
  3. CELEXA (CITALOPRAM HYDROBROMIDE) [Concomitant]
  4. RAZADYNE ER (GALANTAMINE HYDROBROMIDE) [Concomitant]
  5. BACLOFEN (BACLOFEN) [Concomitant]
  6. CLONAZEPAM (CLONAZEPAM) [Concomitant]
  7. WELLBUTRIN (BUPROPION HYDROCHLORIDE) [Concomitant]

REACTIONS (6)
  - Thinking abnormal [None]
  - Dizziness [None]
  - Throat irritation [None]
  - Somnolence [None]
  - Nasopharyngitis [None]
  - Viral infection [None]
